FAERS Safety Report 22062820 (Version 1)
Quarter: 2023Q1

REPORT INFORMATION
  Report Type: Other
  Country: DE (occurrence: None)
  Receive Date: 20230306
  Receipt Date: 20230306
  Transmission Date: 20230418
  Serious: Yes (Other)
  Sender: FDA-Public Use
  Company Number: DE-ROCHE-3196085

PATIENT
  Age: 0 Year
  Sex: Female
  Weight: 4.9 kg

DRUGS (8)
  1. OCRELIZUMAB [Suspect]
     Active Substance: OCRELIZUMAB
     Indication: Product used for unknown indication
     Route: 064
     Dates: start: 20211104, end: 20211104
  2. DIMETHINDENE [Concomitant]
     Active Substance: DIMETHINDENE
  3. ACETAMINOPHEN [Concomitant]
     Active Substance: ACETAMINOPHEN
  4. OMEPRAZOLE [Concomitant]
     Active Substance: OMEPRAZOLE
  5. FOSFOMYCIN [Concomitant]
     Active Substance: FOSFOMYCIN
     Dates: start: 20211221, end: 20211221
  6. CEFUROXIME [Concomitant]
     Active Substance: CEFUROXIME
     Dates: start: 20211221, end: 20211226
  7. SELENIUM [Concomitant]
     Active Substance: SELENIUM
     Dates: start: 202101
  8. PROGESTERONE [Concomitant]
     Active Substance: PROGESTERONE
     Dates: start: 20210915, end: 20210930

REACTIONS (3)
  - Foetal growth restriction [Recovered/Resolved]
  - B-lymphocyte count decreased [Recovered/Resolved]
  - Foetal exposure during pregnancy [Unknown]

NARRATIVE: CASE EVENT DATE: 20220804
